FAERS Safety Report 7245256-5 (Version None)
Quarter: 2011Q1

REPORT INFORMATION
  Report Type: 
  Country: None (occurrence: None)
  Receive Date: 20110126
  Receipt Date: 20110117
  Transmission Date: 20110831
  Serious: Yes (Other)
  Sender: FDA-Public Use
  Company Number: US-ASTRAZENECA-2011SE03112

PATIENT
  Sex: Male

DRUGS (4)
  1. ZESTRIL [Suspect]
     Route: 048
  2. KEPPRA [Concomitant]
  3. CELEXA [Concomitant]
  4. TEMODAR [Concomitant]

REACTIONS (1)
  - BRAIN NEOPLASM [None]
